FAERS Safety Report 12822028 (Version 3)
Quarter: 2017Q3

REPORT INFORMATION
  Report Type: Spontaneous
  Country: IT (occurrence: IT)
  Receive Date: 20161007
  Receipt Date: 20170831
  Transmission Date: 20171127
  Serious: Yes (Hospitalization, Other)
  Sender: FDA-Public Use
  Company Number: IT-TEVA-697959ACC

PATIENT
  Age: 29 Year
  Sex: Male

DRUGS (2)
  1. SODIUM OXYBATE. [Suspect]
     Active Substance: SODIUM OXYBATE
     Indication: LIBIDO INCREASED
     Route: 048
  2. SILDENAFIL. [Suspect]
     Active Substance: SILDENAFIL
     Indication: LIBIDO INCREASED
     Route: 048

REACTIONS (9)
  - Dizziness [Recovered/Resolved]
  - Wrong technique in product usage process [Unknown]
  - Dyspnoea [Recovered/Resolved]
  - Tachycardia [Recovered/Resolved]
  - Chest pain [Recovered/Resolved]
  - Sinus tachycardia [Recovered/Resolved]
  - Vertigo [Recovered/Resolved]
  - Headache [Recovered/Resolved]
  - Toxicity to various agents [Recovered/Resolved]
